FAERS Safety Report 8547828-4 (Version None)
Quarter: 2012Q3

REPORT INFORMATION
  Report Type: 
  Country: None (occurrence: None)
  Receive Date: 20120727
  Receipt Date: 20120223
  Transmission Date: 20120928
  Serious: Yes (Other)
  Sender: FDA-Public Use
  Company Number: US-ASTRAZENECA-2012SE12695

PATIENT

DRUGS (2)
  1. SEROQUEL [Suspect]
     Indication: BIPOLAR DISORDER
     Route: 048
  2. SEROQUEL [Suspect]
     Indication: POST-TRAUMATIC STRESS DISORDER
     Route: 048

REACTIONS (4)
  - LONG QT SYNDROME [None]
  - WEIGHT INCREASED [None]
  - DIABETES MELLITUS [None]
  - THERAPEUTIC RESPONSE UNEXPECTED [None]
